FAERS Safety Report 6095802-2 (Version None)
Quarter: 2009Q1

REPORT INFORMATION
  Report Type: 
  Country: None (occurrence: None)
  Receive Date: 20090227
  Receipt Date: 20080618
  Transmission Date: 20090719
  Serious: Yes (Disabling)
  Sender: FDA-Public Use
  Company Number: A0733694A

PATIENT
  Age: 27 Year
  Sex: Female

DRUGS (4)
  1. LAMICTAL [Suspect]
     Indication: BIPOLAR DISORDER
     Dosage: 150MG PER DAY
     Route: 048
     Dates: start: 20050101
  2. NUVARING [Suspect]
     Indication: CONTRACEPTION
     Dosage: 1UNIT CYCLIC
     Route: 067
     Dates: start: 20080304, end: 20080617
  3. DEPAKOTE ER [Concomitant]
  4. ZOLOFT [Concomitant]

REACTIONS (2)
  - DEPRESSION [None]
  - DRUG INTERACTION [None]
